FAERS Safety Report 9299120 (Version 2)
Quarter: 2014Q3

REPORT INFORMATION
  Report Type: Spontaneous
  Country: US (occurrence: US)
  Receive Date: 20130520
  Receipt Date: 20140812
  Transmission Date: 20150326
  Serious: Yes (Hospitalization, Disabling, Other)
  Sender: FDA-Public Use
  Company Number: US-009507513-1305USA010812

PATIENT
  Sex: Female

DRUGS (1)
  1. NUVARING [Suspect]
     Active Substance: ETHINYL ESTRADIOL\ETONOGESTREL
     Indication: CONTRACEPTION
     Dosage: UNK
     Route: 067
     Dates: start: 201011, end: 20110203

REACTIONS (11)
  - Antithrombin III decreased [Unknown]
  - Protein S decreased [Unknown]
  - Abdominal pain [Unknown]
  - Musculoskeletal chest pain [Unknown]
  - Pulmonary embolism [Unknown]
  - Mood swings [Unknown]
  - Upper respiratory tract infection [Unknown]
  - Flank pain [Unknown]
  - Hepatic steatosis [Unknown]
  - Musculoskeletal discomfort [Unknown]
  - Pneumonia [Unknown]

NARRATIVE: CASE EVENT DATE: 201011
